FAERS Safety Report 7732115-4 (Version None)
Quarter: 2011Q3

REPORT INFORMATION
  Report Type: 
  Country: None (occurrence: None)
  Receive Date: 20110906
  Receipt Date: 20110826
  Transmission Date: 20111222
  Serious: Yes (Other)
  Sender: FDA-Public Use
  Company Number: US-ASTRAZENECA-2011SE51803

PATIENT
  Sex: Male

DRUGS (12)
  1. ZOMIG [Concomitant]
     Indication: HEADACHE
  2. SEROQUEL [Suspect]
     Route: 048
  3. MIRTAZAPINE [Suspect]
     Route: 065
     Dates: start: 20070101
  4. LITHIUM CARBONATE [Suspect]
     Route: 065
     Dates: start: 20070101
  5. IMITREX [Concomitant]
     Indication: HEADACHE
  6. SOMA [Concomitant]
  7. RISPERDAL [Suspect]
     Route: 065
     Dates: start: 20070101
  8. DEPAKOTE [Concomitant]
     Indication: HEADACHE
  9. SEROQUEL [Suspect]
     Route: 048
     Dates: start: 20070101
  10. ZYPREXA [Suspect]
     Route: 065
  11. ZOLOFT [Concomitant]
  12. SKELAXIN [Concomitant]

REACTIONS (6)
  - WEIGHT INCREASED [None]
  - FATIGUE [None]
  - DISTURBANCE IN ATTENTION [None]
  - AGITATION [None]
  - MEMORY IMPAIRMENT [None]
  - CONDITION AGGRAVATED [None]
